FAERS Safety Report 26069363 (Version 2)
Quarter: 2025Q4

REPORT INFORMATION
  Report Type: Report from Study
  Country: PH (occurrence: PH)
  Receive Date: 20251120
  Receipt Date: 20251125
  Transmission Date: 20260117
  Serious: Yes (Other)
  Sender: EISAI
  Company Number: PH-Eisai-EC-2025-199110

PATIENT
  Age: 51 Year
  Sex: Female

DRUGS (1)
  1. HALAVEN [Suspect]
     Active Substance: ERIBULIN MESYLATE
     Indication: Breast cancer metastatic
     Route: 042
     Dates: start: 2024, end: 2025

REACTIONS (2)
  - Cataract subcapsular [Unknown]
  - Astigmatism [Unknown]

NARRATIVE: CASE EVENT DATE: 20250226
